FAERS Safety Report 7675685-7 (Version None)
Quarter: 2011Q3

REPORT INFORMATION
  Report Type: 
  Country: None (occurrence: None)
  Receive Date: 20110810
  Receipt Date: 20110722
  Transmission Date: 20111222
  Serious: Yes (Death, Hospitalization)
  Sender: FDA-Public Use
  Company Number: US-ELI_LILLY_AND_COMPANY-US201104006312

PATIENT
  Sex: Female

DRUGS (3)
  1. FORTEO [Suspect]
     Dosage: 20 UG, QD
     Route: 058
  2. FORTEO [Suspect]
     Indication: OSTEOPOROSIS
     Dosage: 20 UG, QD
     Route: 058
     Dates: start: 20110517
  3. FORTEO [Suspect]
     Dosage: 20 UG, QD
     Route: 058
     Dates: end: 20110716

REACTIONS (10)
  - MUSCULOSKELETAL DISCOMFORT [None]
  - PAIN [None]
  - INJECTION SITE HAEMORRHAGE [None]
  - DEATH [None]
  - PAIN IN EXTREMITY [None]
  - ABASIA [None]
  - MUSCLE SPASMS [None]
  - HIP ARTHROPLASTY [None]
  - MUSCULAR WEAKNESS [None]
  - MALAISE [None]
